FAERS Safety Report 4684177-9 (Version None)
Quarter: 2005Q2

REPORT INFORMATION
  Report Type: 
  Country: None (occurrence: None)
  Receive Date: 20050607
  Receipt Date: 20050301
  Transmission Date: 20051028
  Serious: Yes (Other)
  Sender: FDA-Public Use
  Company Number: GB-GLAXOSMITHKLINE-B0373303A

PATIENT
  Age: 40 Year
  Sex: Female

DRUGS (6)
  1. LAMICTAL [Suspect]
     Indication: DRUG USE FOR UNKNOWN INDICATION
     Dosage: 100MG TWICE PER DAY
     Route: 048
     Dates: start: 20040401
  2. EPILIM [Concomitant]
     Dosage: 500MG TWICE PER DAY
     Route: 065
  3. RAMIPRIL [Concomitant]
     Dosage: 2.5MG TWICE PER DAY
     Route: 065
  4. ATENOLOL [Concomitant]
     Dosage: 50MG PER DAY
     Route: 065
  5. ASPIRIN [Concomitant]
     Dosage: 75MG PER DAY
     Route: 065
  6. ISOSORBIDE MONONITRATE [Concomitant]
     Dosage: 30MG PER DAY
     Route: 065

REACTIONS (5)
  - DEPRESSED MOOD [None]
  - HALLUCINATION [None]
  - HALLUCINATION, VISUAL [None]
  - HEADACHE [None]
  - SOCIAL AVOIDANT BEHAVIOUR [None]
